FAERS Safety Report 4766548-5 (Version None)
Quarter: 2005Q3

REPORT INFORMATION
  Report Type: 
  Country: None (occurrence: None)
  Receive Date: 20050909
  Receipt Date: 20050831
  Transmission Date: 20060218
  Serious: Yes (Hospitalization)
  Sender: FDA-Public Use
  Company Number: 2005123245

PATIENT
  Age: 79 Year
  Sex: Female

DRUGS (27)
  1. LYRICA [Suspect]
     Indication: NEUROPATHIC PAIN
     Dosage: 2 IN 1 D, ORAL
     Route: 048
     Dates: start: 20050825, end: 20050826
  2. ACTONEL [Concomitant]
  3. AMITRIPTYLINE HYDROCHLORIDE [Concomitant]
  4. ATROVENT [Concomitant]
  5. CALTRATE (CALCIUM CARBONATE) [Concomitant]
  6. COLOXYL WITH SENNA (DOCUSATE SODIUM, SENNOSIDE A+B) [Concomitant]
  7. CRANBERRY (VACCINIUM MACROCARPON) [Concomitant]
  8. OXYCODONE HCL [Concomitant]
  9. ESTRADERM [Concomitant]
  10. FUROSEMIDE [Concomitant]
  11. GASTROGEL (ALUMINIUM HYDROXIDE GEL, MAGNESIUM HYDROXIDE, MAGNESIUM TRI [Concomitant]
  12. LACTULOSE [Concomitant]
  13. MAXOLON [Concomitant]
  14. MS CONTIN [Concomitant]
  15. MULTIVITAMINS WITH MINERALS (MULTIVITAMINS WITH MINERALS) [Concomitant]
  16. OMEGA-3 (OMEGA-3 TRIGLYCERIDES) [Concomitant]
  17. PANADEINE FORTE (CODEINE PHOSPHATE, PARACETAMOL) [Concomitant]
  18. PANAMAX (PARACETAMOL) [Concomitant]
  19. PANTOPRAZOLE SODIUM [Concomitant]
  20. PREDNISONE [Concomitant]
  21. QUINATE (QUININE SULFATE) [Concomitant]
  22. SERETIDE (FLUTICASONE PROPIONATE, SALMETEROL) [Concomitant]
  23. SIGMACORT (HYDROCORTISONE) [Concomitant]
  24. TEMAZEPAM [Concomitant]
  25. TRANSIDERM-NITRO (GLYCERYL TRINITRATE) [Concomitant]
  26. VENTOLIN [Concomitant]
  27. VENTOLIN NEBULES PF (SALBUTAMOL SULFATE) [Concomitant]

REACTIONS (5)
  - AGITATION [None]
  - CONVULSION [None]
  - DYSKINESIA [None]
  - INCOHERENT [None]
  - MYOCLONUS [None]
